FAERS Safety Report 11829170 (Version 3)
Quarter: 2016Q1

REPORT INFORMATION
  Report Type: Spontaneous
  Country: AR (occurrence: AR)
  Receive Date: 20151211
  Receipt Date: 20160115
  Transmission Date: 20160525
  Serious: Yes (Hospitalization, Other)
  Sender: FDA-Public Use
  Company Number: AR-PFIZER INC-2015437834

PATIENT
  Age: 55 Year
  Sex: Female

DRUGS (5)
  1. LIPIDOL [Concomitant]
     Active Substance: ETHIODIZED OIL
     Dosage: UNK
  2. CARVEDILOL. [Concomitant]
     Active Substance: CARVEDILOL
     Dosage: UNK
  3. TRASTOCIR [Concomitant]
     Dosage: UNK
  4. XALKORI [Suspect]
     Active Substance: CRIZOTINIB
     Indication: NON-SMALL CELL LUNG CANCER METASTATIC
     Dosage: 250 MG, 2X/DAY
     Route: 048
     Dates: start: 20150707, end: 2015
  5. LANZOPRAL [Concomitant]
     Dosage: UNK
     Dates: start: 2014

REACTIONS (6)
  - Blood pressure decreased [Unknown]
  - Non-small cell lung cancer metastatic [Unknown]
  - Chronic obstructive pulmonary disease [Unknown]
  - Thrombosis [Recovering/Resolving]
  - Dyspnoea [Not Recovered/Not Resolved]
  - Disease progression [Unknown]

NARRATIVE: CASE EVENT DATE: 2015
